FAERS Safety Report 7890014-1 (Version None)
Quarter: 2011Q4

REPORT INFORMATION
  Report Type: 
  Country: None (occurrence: None)
  Receive Date: 20111103
  Receipt Date: 20111027
  Transmission Date: 20120403
  Serious: Yes (Other)
  Sender: FDA-Public Use
  Company Number: PHEH2011US08011

PATIENT
  Sex: Female

DRUGS (1)
  1. EXTAVIA [Suspect]
     Indication: MULTIPLE SCLEROSIS

REACTIONS (4)
  - NEOPLASM MALIGNANT [None]
  - ANAEMIA [None]
  - GASTROINTESTINAL CARCINOMA [None]
  - BLOOD POTASSIUM DECREASED [None]
